FAERS Safety Report 12623937 (Version 2)
Quarter: 2016Q3

REPORT INFORMATION
  Report Type: Report from Study
  Country: NL (occurrence: NL)
  Receive Date: 20160804
  Receipt Date: 20160919
  Transmission Date: 20161109
  Serious: Yes (Disabling)
  Sender: FDA-Public Use
  Company Number: NL-ABBVIE-16P-114-1694158-00

PATIENT
  Age: 78 Year
  Sex: Male
  Weight: 74 kg

DRUGS (1)
  1. DUODOPA [Suspect]
     Active Substance: CARBIDOPA\LEVODOPA
     Indication: PARKINSON^S DISEASE
     Dosage: MD: 7, CD: 6.2, ED: 1, ND: 3.9, NIGHT EXTRA DOSE: 0.5
     Route: 050
     Dates: start: 20130218

REACTIONS (4)
  - Stress [Not Recovered/Not Resolved]
  - Gait disturbance [Unknown]
  - Speech disorder [Unknown]
  - Constipation [Unknown]

NARRATIVE: CASE EVENT DATE: 2015
